FAERS Safety Report 10435869 (Version 1)
Quarter: 2014Q3

REPORT INFORMATION
  Report Type: Spontaneous
  Country: US (occurrence: US)
  Receive Date: 20140908
  Receipt Date: 20140908
  Transmission Date: 20150326
  Serious: Yes (Hospitalization)
  Sender: FDA-Public Use
  Company Number: US-BEH-2014044754

PATIENT
  Age: 81 Year
  Sex: Female
  Weight: 55 kg

DRUGS (19)
  1. NORMAL SALINE [Concomitant]
     Active Substance: SODIUM CHLORIDE
  2. SYNTHROID [Concomitant]
     Active Substance: LEVOTHYROXINE SODIUM
  3. COENZYME Q-10 [Concomitant]
  4. EPIPEN [Concomitant]
     Active Substance: EPINEPHRINE
  5. LOPERAMIDE [Concomitant]
     Active Substance: LOPERAMIDE
  6. FOLIC ACID. [Concomitant]
     Active Substance: FOLIC ACID
  7. BIOTIN [Concomitant]
     Active Substance: BIOTIN
  8. VITAMIN C [Concomitant]
     Active Substance: ASCORBIC ACID
  9. VITAMIN D [Concomitant]
     Active Substance: CHOLECALCIFEROL
  10. CHONDROITIN SULF [Concomitant]
  11. DIOVAN [Concomitant]
     Active Substance: VALSARTAN
  12. PRIVIGEN [Suspect]
     Active Substance: HUMAN IMMUNOGLOBULIN G
     Indication: HYPOGLOBULINAEMIA
     Route: 042
     Dates: start: 20140811
  13. ATENOLOL. [Concomitant]
     Active Substance: ATENOLOL
  14. SODIUM CHLORIDE. [Concomitant]
     Active Substance: SODIUM CHLORIDE
  15. FOSAMAX [Concomitant]
     Active Substance: ALENDRONATE SODIUM
  16. SYMBICORT [Concomitant]
     Active Substance: BUDESONIDE\FORMOTEROL FUMARATE DIHYDRATE
  17. CALCIUM CHEWABLES [Concomitant]
  18. TRAMADOL [Concomitant]
     Active Substance: TRAMADOL
  19. GLUCOSAMINE [Concomitant]
     Active Substance: GLUCOSAMINE

REACTIONS (1)
  - Pneumonia [Unknown]

NARRATIVE: CASE EVENT DATE: 20140820
